FAERS Safety Report 6686143-0 (Version None)
Quarter: 2010Q2

REPORT INFORMATION
  Report Type: 
  Country: None (occurrence: None)
  Receive Date: 20100419
  Receipt Date: 20100407
  Transmission Date: 20101027
  Serious: Yes (Hospitalization, Other)
  Sender: FDA-Public Use
  Company Number: PHHY2010DE22693

PATIENT
  Sex: Female
  Weight: 93 kg

DRUGS (12)
  1. ALISKIREN ALI+ [Suspect]
     Indication: HYPERTENSION
     Dosage: 300 MG, PER DAY
     Route: 048
     Dates: start: 20090324, end: 20090928
  2. ANGIOTENSIN CONVERTING ENZYME BLOCKERS [Concomitant]
  3. NITRATES [Concomitant]
  4. ARLEVERT [Concomitant]
     Indication: DIZZINESS
     Dosage: 60 MG, PER DAY
     Route: 048
     Dates: start: 20090320, end: 20100318
  5. OLMESARTAN MEDOXOMIL [Concomitant]
     Indication: HYPERTENSION
     Dosage: 40 MG, PER DAY
     Route: 048
     Dates: start: 20090320
  6. GLIMEPIRIDE [Concomitant]
     Indication: DIABETES MELLITUS
     Dosage: 3 MG, PER DAY
     Route: 048
     Dates: start: 20090320
  7. ALLOPURINOL [Concomitant]
     Indication: HYPERURICAEMIA
     Dosage: UNK
     Route: 048
     Dates: start: 20090320
  8. SIMVASTATIN [Concomitant]
     Indication: HYPERCHOLESTEROLAEMIA
     Dosage: 20 MG, PER DAY
     Route: 048
     Dates: start: 20090320
  9. NEBILET [Concomitant]
     Indication: HYPERTENSION
     Dosage: 5 MG, PER DAY
     Route: 048
     Dates: start: 20090320
  10. GLUCOBAY [Concomitant]
     Indication: DIABETES MELLITUS
     Dosage: 150 MG, PER DAY
     Route: 048
     Dates: start: 20090320
  11. ASPIRIN [Concomitant]
     Indication: CORONARY ARTERY DISEASE
     Dosage: 100 MG, PER DAY
     Route: 048
     Dates: start: 20090320
  12. DIURETICS [Concomitant]
     Dosage: UNK
     Dates: start: 20090928

REACTIONS (5)
  - BLOOD CHOLESTEROL INCREASED [None]
  - BLOOD TRIGLYCERIDES INCREASED [None]
  - CORONARY ARTERY DISEASE [None]
  - GLYCOSYLATED HAEMOGLOBIN INCREASED [None]
  - VASCULAR GRAFT [None]
